FAERS Safety Report 9625559 (Version 2)
Quarter: 2013Q4

REPORT INFORMATION
  Report Type: Spontaneous
  Country: AU (occurrence: AU)
  Receive Date: 20131016
  Receipt Date: 20131107
  Transmission Date: 20140711
  Serious: Yes (Other)
  Sender: FDA-Public Use
  Company Number: PHHY2013AU115055

PATIENT
  Sex: Male

DRUGS (4)
  1. RITALIN [Suspect]
     Dosage: UNK UKN, UNK
  2. RISPERIDONE [Suspect]
     Dosage: UNK UKN, UNK
  3. MELATONIN [Suspect]
     Dosage: UNK UKN, UNK
  4. ZOLOFT [Suspect]
     Dosage: UNK UKN, UNK

REACTIONS (9)
  - Suicidal ideation [Unknown]
  - Growth retardation [Unknown]
  - Disturbance in attention [Unknown]
  - Ocular hyperaemia [Unknown]
  - Aggression [Unknown]
  - Abdominal pain [Unknown]
  - Dyskinesia [Unknown]
  - Insomnia [Unknown]
  - Weight decreased [Unknown]
